FAERS Safety Report 10032968 (Version 1)
Quarter: 2014Q1

REPORT INFORMATION
  Report Type: Spontaneous
  Country: US (occurrence: US)
  Receive Date: 20140324
  Receipt Date: 20140324
  Transmission Date: 20141002
  Serious: Yes (Death)
  Sender: FDA-Public Use
  Company Number: US-B.I. PHARMACEUTICALS,INC./RIDGEFIELD-2014-BI-12485BP

PATIENT
  Sex: Female

DRUGS (1)
  1. PRADAXA [Suspect]
     Indication: PRODUCT USED FOR UNKNOWN INDICATION
     Route: 065

REACTIONS (8)
  - Gastrointestinal haemorrhage [Fatal]
  - Mouth haemorrhage [Fatal]
  - Anaemia [Fatal]
  - Thrombocytopenia [Fatal]
  - Respiratory failure [Fatal]
  - Renal failure [Fatal]
  - Sepsis [Fatal]
  - Shock [Fatal]
